FAERS Safety Report 7532830-1 (Version None)
Quarter: 2011Q2

REPORT INFORMATION
  Report Type: 
  Country: None (occurrence: None)
  Receive Date: 20110608
  Receipt Date: 20110603
  Transmission Date: 20111010
  Serious: Yes (Hospitalization, Other)
  Sender: FDA-Public Use
  Company Number: US-PFIZER INC-2011041766

PATIENT
  Sex: Male

DRUGS (2)
  1. CHANTIX [Suspect]
     Indication: SMOKING CESSATION THERAPY
     Dosage: STARTER PACK AND 2 CONTINUING MONTH PACKS
     Dates: start: 20070901, end: 20071101
  2. CHANTIX [Suspect]
     Dosage: 3 CONTINUING MONTH PACKS
     Dates: start: 20090129, end: 20090601

REACTIONS (4)
  - ANXIETY [None]
  - BIPOLAR DISORDER [None]
  - SUICIDE ATTEMPT [None]
  - DEPRESSION [None]
